FAERS Safety Report 16245929 (Version 2)
Quarter: 2019Q3

REPORT INFORMATION
  Report Type: Spontaneous
  Country: US (occurrence: US)
  Receive Date: 20190426
  Receipt Date: 20190917
  Transmission Date: 20191004
  Serious: Yes (Other)
  Sender: FDA-Public Use
  Company Number: US-SA-2019SA110852

PATIENT
  Age: 47 Year
  Sex: Female
  Weight: 85.53 kg

DRUGS (8)
  1. NEOSAR [Concomitant]
     Active Substance: CYCLOPHOSPHAMIDE
     Indication: BREAST CANCER FEMALE
     Dosage: 200 MG, Q3W
     Dates: start: 20020312, end: 20020312
  2. CYTOXAN [Concomitant]
     Active Substance: CYCLOPHOSPHAMIDE
     Dosage: 200 MG, Q3W
     Dates: start: 20090514, end: 20090514
  3. NEOSAR [Concomitant]
     Active Substance: CYCLOPHOSPHAMIDE
     Dosage: 200 MG, Q3W
     Dates: start: 20020514, end: 20020514
  4. CYTOXAN [Concomitant]
     Active Substance: CYCLOPHOSPHAMIDE
     Indication: BREAST CANCER FEMALE
     Dosage: 200 MG, Q3W
     Dates: start: 20020312, end: 20020312
  5. ADRIAMYCIN [Concomitant]
     Active Substance: DOXORUBICIN HYDROCHLORIDE
     Indication: BREAST CANCER FEMALE
     Dosage: 200 MG, Q3W
     Dates: start: 20020312, end: 20020312
  6. ADRIAMYCIN [Concomitant]
     Active Substance: DOXORUBICIN HYDROCHLORIDE
     Dosage: 200 MG, Q3W
     Dates: start: 20090514, end: 20090514
  7. TAXOTERE [Suspect]
     Active Substance: DOCETAXEL
     Indication: BREAST CANCER FEMALE
     Dosage: 200 MG, Q3W
     Route: 042
     Dates: start: 20020312, end: 20020312
  8. TAXOTERE [Suspect]
     Active Substance: DOCETAXEL
     Dosage: 200 MG, Q3W
     Route: 042
     Dates: start: 20020514, end: 20020514

REACTIONS (6)
  - Alopecia [Recovering/Resolving]
  - Pain [Unknown]
  - Emotional distress [Unknown]
  - Impaired quality of life [Unknown]
  - Anxiety [Unknown]
  - Psychological trauma [Unknown]

NARRATIVE: CASE EVENT DATE: 20020412
